FAERS Safety Report 11254735 (Version 3)
Quarter: 2015Q3

REPORT INFORMATION
  Report Type: Report from Study
  Country: AU (occurrence: AU)
  Receive Date: 20150709
  Receipt Date: 20150924
  Transmission Date: 20151125
  Serious: Yes (Hospitalization, Congenital Anomaly)
  Sender: FDA-Public Use
  Company Number: AU-EMD SERONO-7181718

PATIENT
  Sex: Female

DRUGS (1)
  1. SAIZEN [Suspect]
     Active Substance: SOMATROPIN
     Indication: INFERTILITY
     Route: 064
     Dates: start: 20121031, end: 20121110

REACTIONS (3)
  - Patent ductus arteriosus [Recovered/Resolved]
  - Large for dates baby [Recovering/Resolving]
  - Foetal exposure during pregnancy [Recovered/Resolved]
